FAERS Safety Report 8845241 (Version 1)
Quarter: 2012Q4

REPORT INFORMATION
  Report Type: Spontaneous
  Country: ES (occurrence: None)
  Receive Date: 20121015
  Receipt Date: 20121015
  Transmission Date: 20130627
  Serious: Yes (Hospitalization)
  Sender: FDA-Public Use
  Company Number: 2012AP003338

PATIENT
  Age: 63 Year
  Sex: Male

DRUGS (1)
  1. METFORMIN [Suspect]
     Indication: TYPE 2 DIABETES MELLITUS

REACTIONS (6)
  - Renal failure acute [None]
  - Lactic acidosis [None]
  - Psychomotor hyperactivity [None]
  - Tachypnoea [None]
  - Haemodynamic instability [None]
  - Hyperkalaemia [None]
